FAERS Safety Report 18851054 (Version 2)
Quarter: 2021Q1

REPORT INFORMATION
  Report Type: Report from Study
  Country: US (occurrence: US)
  Receive Date: 20210205
  Receipt Date: 20210304
  Transmission Date: 20210420
  Serious: Yes (Death, Other)
  Sender: FDA-Public Use
  Company Number: US-ACADIA PHARMACEUTICALS INC.-ACA-2021-PIM-000410

PATIENT
  Sex: Male

DRUGS (19)
  1. CARBIDOPA. [Concomitant]
     Active Substance: CARBIDOPA
  2. DONEPEZIL. [Concomitant]
     Active Substance: DONEPEZIL
  3. ENTRESTO [Concomitant]
     Active Substance: SACUBITRIL\VALSARTAN
  4. FUROSEMIDE. [Concomitant]
     Active Substance: FUROSEMIDE
  5. PANTOPRAZOLE [Concomitant]
     Active Substance: PANTOPRAZOLE
  6. AMIODARONE [Concomitant]
     Active Substance: AMIODARONE
  7. ASPIRIN [ACETYLSALICYLIC ACID] [Concomitant]
     Active Substance: ASPIRIN
  8. ISOSORBIDE. [Concomitant]
     Active Substance: ISOSORBIDE
  9. PROSCAR [Concomitant]
     Active Substance: FINASTERIDE
  10. RANEXA [Concomitant]
     Active Substance: RANOLAZINE
  11. NUPLAZID [Suspect]
     Active Substance: PIMAVANSERIN TARTRATE
     Indication: DELUSION
  12. LOPRESSOR [Concomitant]
     Active Substance: METOPROLOL TARTRATE
  13. ROSUVASTATIN. [Concomitant]
     Active Substance: ROSUVASTATIN
  14. RASAGILINE. [Concomitant]
     Active Substance: RASAGILINE
  15. NUPLAZID [Suspect]
     Active Substance: PIMAVANSERIN TARTRATE
     Indication: PARKINSON^S DISEASE PSYCHOSIS
     Dosage: 34 MILLIGRAM, QD
     Route: 048
     Dates: start: 20201231
  16. ALDACTONE [Concomitant]
     Active Substance: SPIRONOLACTONE
  17. NUPLAZID [Suspect]
     Active Substance: PIMAVANSERIN TARTRATE
     Indication: HALLUCINATION
  18. ELIQUIS [Concomitant]
     Active Substance: APIXABAN
  19. TAMSULOSIN [Concomitant]
     Active Substance: TAMSULOSIN

REACTIONS (1)
  - Death [Fatal]
